FAERS Safety Report 19321561 (Version 2)
Quarter: 2022Q2

REPORT INFORMATION
  Report Type: Spontaneous
  Country: GB (occurrence: GB)
  Receive Date: 20210528
  Receipt Date: 20220606
  Transmission Date: 20220720
  Serious: Yes (Life-Threatening, Other)
  Sender: FDA-Public Use
  Company Number: GB-AUROBINDO-AUR-APL-2021-011617

PATIENT
  Age: 6 Year
  Sex: Female

DRUGS (5)
  1. ABACAVIR [Suspect]
     Active Substance: ABACAVIR
     Indication: HIV infection
     Dosage: 300 MILLIGRAM, ONCE A DAY
     Route: 065
  2. LAMIVUDINE [Suspect]
     Active Substance: LAMIVUDINE
     Indication: HIV infection
     Dosage: 150 MILLIGRAM, ONCE A DAY
     Route: 065
  3. RALTEGRAVIR [Suspect]
     Active Substance: RALTEGRAVIR
     Indication: HIV infection
     Dosage: 100 MILLIGRAM, TWO TIMES A DAY
     Route: 065
  4. RALTEGRAVIR [Suspect]
     Active Substance: RALTEGRAVIR
     Dosage: 100 MILLIGRAM, ONCE A DAY
     Route: 065
  5. DOLUTEGRAVIR [Concomitant]
     Active Substance: DOLUTEGRAVIR
     Indication: HIV infection
     Dosage: 600 MILLIGRAM, ONCE A DAY
     Route: 065

REACTIONS (5)
  - Blood creatine phosphokinase increased [Recovering/Resolving]
  - Myositis [Recovering/Resolving]
  - Muscular weakness [Recovering/Resolving]
  - Mobility decreased [Recovering/Resolving]
  - Inflammation [Recovering/Resolving]
